FAERS Safety Report 8151258-7 (Version None)
Quarter: 2012Q1

REPORT INFORMATION
  Report Type: 
  Country: None (occurrence: None)
  Receive Date: 20120220
  Receipt Date: 20120216
  Transmission Date: 20120608
  Serious: Yes (Death, Other)
  Sender: FDA-Public Use
  Company Number: BE-ABBOTT-12P-013-0905286-00

PATIENT
  Sex: Male
  Weight: 103 kg

DRUGS (1)
  1. HUMIRA [Suspect]
     Indication: ANKYLOSING SPONDYLITIS
     Route: 058
     Dates: start: 20110110, end: 20111030

REACTIONS (6)
  - CHEST DISCOMFORT [None]
  - CORONARY ARTERY STENOSIS [None]
  - HYPERCHOLESTEROLAEMIA [None]
  - SUDDEN DEATH [None]
  - HYPERTENSION [None]
  - CHEST PAIN [None]
